FAERS Safety Report 20036749 (Version 2)
Quarter: 2021Q4

REPORT INFORMATION
  Report Type: Report from Study
  Country: IT (occurrence: IT)
  Receive Date: 20211105
  Receipt Date: 20211217
  Transmission Date: 20220303
  Serious: Yes (Death)
  Sender: FDA-Public Use
  Company Number: None

PATIENT
  Age: 84 Year
  Sex: Female

DRUGS (3)
  1. TICLOPIDINE [Suspect]
     Active Substance: TICLOPIDINE
     Indication: Antiplatelet therapy
     Dosage: 250 MILLIGRAM, QD
     Route: 048
  2. HALCION [Concomitant]
     Active Substance: TRIAZOLAM
     Dosage: 250 MICROGRAM
     Route: 048
  3. PROPAFENONE [Concomitant]
     Active Substance: PROPAFENONE
     Dosage: 425 MILLIGRAM
     Route: 048

REACTIONS (2)
  - Subdural haematoma [Fatal]
  - Headache [Fatal]

NARRATIVE: CASE EVENT DATE: 20210623
